FAERS Safety Report 7896548-8 (Version None)
Quarter: 2011Q4

REPORT INFORMATION
  Report Type: 
  Country: None (occurrence: None)
  Receive Date: 20111106
  Receipt Date: 20111026
  Transmission Date: 20120403
  Serious: Yes (Other)
  Sender: FDA-Public Use
  Company Number: US-AMGEN-USASP2011043314

PATIENT
  Sex: Female

DRUGS (1)
  1. ENBREL [Suspect]
     Indication: RHEUMATOID ARTHRITIS
     Dosage: 50 MG, QWK
     Dates: start: 20010701

REACTIONS (6)
  - TUBERCULIN TEST POSITIVE [None]
  - TOOTH INJURY [None]
  - INJECTION SITE PAIN [None]
  - OESOPHAGEAL CANDIDIASIS [None]
  - DENTAL PROSTHESIS PLACEMENT [None]
  - FIBROMYALGIA [None]
